FAERS Safety Report 6419732-9 (Version None)
Quarter: 2009Q4

REPORT INFORMATION
  Report Type: 
  Country: None (occurrence: None)
  Receive Date: 20091029
  Receipt Date: 20091023
  Transmission Date: 20100525
  Serious: Yes (Other)
  Sender: FDA-Public Use
  Company Number: US-AVENTIS-200919544US

PATIENT

DRUGS (1)
  1. APIDRA [Suspect]
     Dosage: DOSE: UNK
     Route: 051

REACTIONS (1)
  - HEMIPLEGIA [None]
